FAERS Safety Report 13420442 (Version 2)
Quarter: 2017Q2

REPORT INFORMATION
  Report Type: Report from Study
  Country: US (occurrence: US)
  Receive Date: 20170408
  Receipt Date: 20170523
  Transmission Date: 20170830
  Serious: Yes (Other)
  Sender: FDA-Public Use
  Company Number: US-AMGEN-USASL2017033163

PATIENT
  Age: 69 Year
  Sex: Female
  Weight: 79.9 kg

DRUGS (22)
  1. PROAIR HFA [Concomitant]
     Active Substance: ALBUTEROL SULFATE
     Dosage: 90 MUG, EVERY 4-6 HOURS AS NECESSARY
     Dates: start: 20140118, end: 20160112
  2. DULERA [Concomitant]
     Active Substance: FORMOTEROL FUMARATE DIHYDRATE\MOMETASONE FUROATE
     Dosage: 100-5 MCG , QD
  3. FLUTICASONE W/SALMETEROL [Concomitant]
     Active Substance: FLUTICASONE PROPIONATE\SALMETEROL XINAFOATE
     Dosage: 50-250 MCG, Q12H (INHALE 1 PUFF)
     Dates: start: 20161206, end: 20170202
  4. PROLIA [Suspect]
     Active Substance: DENOSUMAB
     Indication: ANEURYSMAL BONE CYST
     Dosage: 60 MG, Q6MO
     Route: 058
     Dates: start: 2012, end: 20160223
  5. XYZAL [Concomitant]
     Active Substance: LEVOCETIRIZINE DIHYDROCHLORIDE
     Dosage: 5 MG, QD
     Route: 048
  6. MOBIC [Concomitant]
     Active Substance: MELOXICAM
     Dosage: 15 MG, QD
     Route: 048
     Dates: start: 20151125, end: 20160314
  7. PROLIA [Suspect]
     Active Substance: DENOSUMAB
     Indication: BONE DISORDER
  8. PNEUMOVAX 23 [Concomitant]
     Active Substance: PNEUMOCOCCAL VACCINE, POLYVALENT 23
  9. CALCIUM [Concomitant]
     Active Substance: CALCIUM
  10. VITAMIN D [Concomitant]
     Active Substance: CHOLECALCIFEROL
  11. TDAP IMMUN [Concomitant]
  12. TRAVATAN Z [Concomitant]
     Active Substance: TRAVOPROST
     Dosage: 0.004 %, UNK
     Dates: start: 20151226
  13. DESYREL [Concomitant]
     Active Substance: TRAZODONE HYDROCHLORIDE
     Dosage: 50 MG, AS NECESSARY
     Route: 048
     Dates: start: 20150827, end: 20160223
  14. LORTAB [Concomitant]
     Active Substance: ACETAMINOPHEN\HYDROCODONE BITARTRATE
     Dosage: TAKE 1-2 TABLETS EVERY 6 HOURS
     Dates: start: 20150702, end: 20160223
  15. ALEVE [Concomitant]
     Active Substance: NAPROXEN SODIUM
     Dosage: 220 MG, BID
     Route: 048
  16. INFLUENZA [Concomitant]
     Active Substance: INFLUENZA VIRUS VACCINE
     Dosage: 0.5 ML, UNK
     Route: 030
  17. ZOSTER (ACYCLOVIR) [Concomitant]
     Active Substance: ACYCLOVIR
  18. MEVACOR [Concomitant]
     Active Substance: LOVASTATIN
     Dosage: 20 MG, BEDTIME
     Route: 048
     Dates: start: 20141110
  19. PREVNAR [Concomitant]
     Active Substance: PNEUMOCOCCAL 7-VALENT CONJUGATE VACCINE (DIPHTHERIA CRM197 PROTEIN)
  20. FLONASE [Concomitant]
     Active Substance: FLUTICASONE PROPIONATE
     Dosage: 50 MUG, QD
     Route: 045
     Dates: start: 20151125, end: 20160314
  21. ATIVAN [Concomitant]
     Active Substance: LORAZEPAM
     Dosage: 0.5 MG, TID
     Route: 048
     Dates: start: 20150603, end: 20160121
  22. COENZYME Q10 [Concomitant]
     Active Substance: UBIDECARENONE
     Dosage: 30 MG, TID
     Route: 048

REACTIONS (21)
  - Hyperlipidaemia [Unknown]
  - Glaucoma [Unknown]
  - Sepsis [Recovered/Resolved]
  - Foot deformity [Unknown]
  - Rhinitis allergic [Unknown]
  - Back pain [Unknown]
  - Off label use [Unknown]
  - Pollakiuria [Unknown]
  - Pneumonia [Unknown]
  - Pain [Unknown]
  - Asthma [Unknown]
  - Anxiety [Unknown]
  - Pleural effusion [Recovered/Resolved]
  - Chronic obstructive pulmonary disease [Unknown]
  - Dystonia [Unknown]
  - Foot operation [Unknown]
  - Systemic inflammatory response syndrome [Recovered/Resolved]
  - Gastrooesophageal reflux disease [Unknown]
  - Gout [Unknown]
  - Colonoscopy [Unknown]
  - Intervertebral disc degeneration [Unknown]

NARRATIVE: CASE EVENT DATE: 20160518
